FAERS Safety Report 24601844 (Version 1)
Quarter: 2024Q4

REPORT INFORMATION
  Report Type: Spontaneous
  Country: JP (occurrence: JP)
  Receive Date: 20241111
  Receipt Date: 20241111
  Transmission Date: 20250115
  Serious: Yes (Hospitalization)
  Sender: ROCHE
  Company Number: JP-CHUGAI-2024002260

PATIENT
  Age: 8 Decade
  Sex: Female
  Weight: 51 kg

DRUGS (1)
  1. ENSPRYNG [Suspect]
     Active Substance: SATRALIZUMAB-MWGE
     Indication: Neuromyelitis optica spectrum disorder
     Dosage: 120 MILLIGRAM, ONCE/4WEEKS
     Route: 058
     Dates: start: 20220517

REACTIONS (4)
  - Cystitis [Recovering/Resolving]
  - Monoparesis [Recovered/Resolved]
  - Drug ineffective [Unknown]
  - Monoparesis [Recovered/Resolved]

NARRATIVE: CASE EVENT DATE: 20230801
